FAERS Safety Report 6371027-8 (Version None)
Quarter: 2009Q3

REPORT INFORMATION
  Report Type: 
  Country: None (occurrence: None)
  Receive Date: 20090921
  Receipt Date: 20090921
  Transmission Date: 20100115
  Serious: Yes (Other)
  Sender: FDA-Public Use
  Company Number: None

PATIENT
  Sex: Male
  Weight: 39.7805 kg

DRUGS (7)
  1. NORTRIPTYLINE HCL [Suspect]
     Indication: HEADACHE
     Dosage: 10MG AT BEDTIME 047 LIQUID
     Dates: start: 20080317, end: 20080325
  2. MELOXICAM [Concomitant]
  3. OXYBUTYNIN CHLORIDE [Concomitant]
  4. LYRICA [Concomitant]
  5. NYSTATIN [Concomitant]
  6. LEXAPRO [Concomitant]
  7. CARAFATE [Concomitant]

REACTIONS (3)
  - FEELING ABNORMAL [None]
  - HYPOAESTHESIA [None]
  - PARAESTHESIA [None]
